FAERS Safety Report 17920778 (Version 1)
Quarter: 2020Q2

REPORT INFORMATION
  Report Type: Spontaneous
  Country: IE (occurrence: IE)
  Receive Date: 20200621
  Receipt Date: 20200621
  Transmission Date: 20200714
  Serious: Yes (Hospitalization)
  Sender: FDA-Public Use
  Company Number: IE-ALVOGEN-2020-ALVOGEN-108651

PATIENT
  Age: 38 Year
  Sex: Female

DRUGS (5)
  1. LEVOBUPIVACAINE [Suspect]
     Active Substance: LEVOBUPIVACAINE
     Indication: EPIDURAL ANALGESIA
     Dosage: CONTINUOUS INFUSION OF 0.1%
     Route: 008
     Dates: start: 201711
  2. FENTANYL. [Suspect]
     Active Substance: FENTANYL
     Indication: EPIDURAL ANALGESIA
     Dosage: 2 MCG/ML FENTANYL AT 9.3 ML/H
     Route: 008
     Dates: start: 201711
  3. FENTANYL. [Suspect]
     Active Substance: FENTANYL
     Indication: EPIDURAL ANALGESIA
     Dosage: LOADING DOSE OF 100 MICROGRAMS
     Route: 008
     Dates: start: 201711
  4. LEVOBUPIVACAINE [Suspect]
     Active Substance: LEVOBUPIVACAINE
     Indication: EPIDURAL ANALGESIA
     Dosage: TEST DOSE, 3 ML OF  0.25%
     Route: 008
     Dates: start: 201711
  5. LEVOBUPIVACAINE [Suspect]
     Active Substance: LEVOBUPIVACAINE
     Indication: EPIDURAL ANALGESIA
     Dosage: LOADING DOSE, 10 ML OF  0.25%
     Route: 008
     Dates: start: 201711

REACTIONS (4)
  - Vomiting [Recovering/Resolving]
  - Deafness neurosensory [Recovering/Resolving]
  - Tinnitus [Recovering/Resolving]
  - Maternal exposure during delivery [Unknown]

NARRATIVE: CASE EVENT DATE: 201711
